FAERS Safety Report 18732224 (Version 2)
Quarter: 2021Q1

REPORT INFORMATION
  Report Type: Other
  Country: BD (occurrence: BD)
  Receive Date: 20210113
  Receipt Date: 20210129
  Transmission Date: 20210419
  Serious: Yes (Other)
  Sender: FDA-Public Use
  Company Number: BD-ROCHE-2747566

PATIENT
  Age: 48 Year
  Sex: Female
  Weight: 67 kg

DRUGS (1)
  1. PERJETA [Suspect]
     Active Substance: PERTUZUMAB
     Indication: HER2 POSITIVE BREAST CANCER
     Route: 065

REACTIONS (2)
  - Pneumonia [Not Recovered/Not Resolved]
  - SARS-CoV-2 test positive [Unknown]

NARRATIVE: CASE EVENT DATE: 20210110
